FAERS Safety Report 8551487-4 (Version None)
Quarter: 2012Q3

REPORT INFORMATION
  Report Type: 
  Country: None (occurrence: None)
  Receive Date: 20120730
  Receipt Date: 20111102
  Transmission Date: 20120928
  Serious: No
  Sender: FDA-Public Use
  Company Number: US-ALLERGAN-1114444US

PATIENT
  Sex: Male
  Weight: 64.399 kg

DRUGS (1)
  1. LUMIGAN [Suspect]
     Indication: GLAUCOMA
     Dosage: 2 GTT, QHS
     Route: 047
     Dates: start: 20100101

REACTIONS (3)
  - EYE PRURITUS [None]
  - ABNORMAL DREAMS [None]
  - INSTILLATION SITE PAIN [None]
